FAERS Safety Report 6730174-9 (Version None)
Quarter: 2010Q2

REPORT INFORMATION
  Report Type: 
  Country: None (occurrence: None)
  Receive Date: 20100513
  Receipt Date: 20100511
  Transmission Date: 20101027
  Serious: Yes (Death, Hospitalization)
  Sender: FDA-Public Use
  Company Number: 2010PL000034

PATIENT
  Age: 60 Year
  Sex: Female
  Weight: 129.2752 kg

DRUGS (16)
  1. LOTRONEX [Suspect]
     Indication: INFLAMMATORY BOWEL DISEASE
     Dosage: 1 MG;QD
     Dates: start: 20080101
  2. LOTRONEX [Suspect]
     Indication: IRRITABLE BOWEL SYNDROME
     Dosage: 1 MG;QD
     Dates: start: 20080101
  3. OMEPRAZOLE [Concomitant]
  4. ATENOLOL [Concomitant]
  5. LIPITOR [Concomitant]
  6. FOLIC ACID [Concomitant]
  7. COUMADIN [Concomitant]
  8. SYNTHROID [Concomitant]
  9. CANDESARTAN CILEXETIL [Concomitant]
  10. SOLIFENACIN [Concomitant]
  11. METFORMIN HYDROCHLORIDE [Concomitant]
  12. PENTASA [Concomitant]
  13. MERCAPTOPURINE [Concomitant]
  14. PREDNISONE TAB [Concomitant]
  15. INSULIN LISPRO [Concomitant]
  16. LOMOTIL /00034001/ [Concomitant]

REACTIONS (5)
  - CROHN'S DISEASE [None]
  - DISEASE RECURRENCE [None]
  - REFUSAL OF TREATMENT BY PATIENT [None]
  - SEPTIC SHOCK [None]
  - SMALL INTESTINAL PERFORATION [None]
